FAERS Safety Report 9885637 (Version 1)
Quarter: 2014Q1

REPORT INFORMATION
  Report Type: Spontaneous
  Country: GB (occurrence: GB)
  Receive Date: 20140210
  Receipt Date: 20140210
  Transmission Date: 20141002
  Serious: Yes (Other)
  Sender: FDA-Public Use
  Company Number: GB-WATSON-2014-01741

PATIENT
  Sex: Female
  Weight: 45 kg

DRUGS (2)
  1. AMITRIPTYLINE [Suspect]
     Indication: PRODUCT USED FOR UNKNOWN INDICATION
     Dosage: 10 MG, UNKNOWN
     Route: 065
  2. HYDROXYCHLOROQUINE SULFATE (WATSON LABORATORIES) [Suspect]
     Indication: RHEUMATOID ARTHRITIS
     Dosage: 200 MG, DAILY
     Route: 065
     Dates: start: 20140108, end: 20140111

REACTIONS (3)
  - Panic reaction [Recovering/Resolving]
  - Agitation [Recovering/Resolving]
  - Depressed mood [Recovering/Resolving]
